FAERS Safety Report 15391265 (Version 1)
Quarter: 2018Q3

REPORT INFORMATION
  Report Type: Spontaneous
  Country: US (occurrence: US)
  Receive Date: 20180910
  Receipt Date: 20180910
  Transmission Date: 20181010
  Serious: No
  Sender: FDA-Public Use
  Company Number: None

PATIENT

DRUGS (2)
  1. WELLBUTRIN [Suspect]
     Active Substance: BUPROPION HYDROCHLORIDE
  2. BUPROPION. [Suspect]
     Active Substance: BUPROPION

REACTIONS (4)
  - Libido decreased [None]
  - Fatigue [None]
  - Treatment failure [None]
  - Adverse drug reaction [None]
